FAERS Safety Report 6170745-4 (Version None)
Quarter: 2009Q2

REPORT INFORMATION
  Report Type: 
  Country: None (occurrence: None)
  Receive Date: 20090427
  Receipt Date: 20090415
  Transmission Date: 20091009
  Serious: Yes (Hospitalization)
  Sender: FDA-Public Use
  Company Number: 2009-01453

PATIENT
  Age: 66 Year
  Sex: Male
  Weight: 82 kg

DRUGS (9)
  1. VELCADE [Suspect]
     Indication: GLIOBLASTOMA MULTIFORME
     Dosage: 2 MG/M2, INTRAVENOUS
     Route: 042
     Dates: end: 20090409
  2. BEVACIZUMAB (BEVACIZUMAB) INJECTION [Suspect]
     Indication: GLIOBLASTOMA MULTIFORME
     Dosage: 15 MG/KG, INTRAVENOUS
     Route: 042
     Dates: end: 20090409
  3. DECADRON [Concomitant]
  4. RANITIDINE [Concomitant]
  5. METOPROLOL TARTRATE [Concomitant]
  6. LISINOPRIL [Concomitant]
  7. DILANTIN [Concomitant]
  8. VYTORIN [Concomitant]
  9. PREGABALIN [Concomitant]

REACTIONS (9)
  - ABDOMINAL PAIN [None]
  - COLITIS [None]
  - DIARRHOEA [None]
  - HYPERTENSION [None]
  - HYPOKALAEMIA [None]
  - HYPOTENSION [None]
  - NAUSEA [None]
  - THROMBOCYTOPENIA [None]
  - VOMITING [None]
